FAERS Safety Report 5503055-6 (Version None)
Quarter: 2007Q4

REPORT INFORMATION
  Report Type: 
  Country: None (occurrence: None)
  Receive Date: 20071031
  Receipt Date: 20071016
  Transmission Date: 20080405
  Serious: Yes (Other)
  Sender: FDA-Public Use
  Company Number: US-ROCHE-528323

PATIENT
  Sex: Male

DRUGS (1)
  1. INTERFERON ALFA [Suspect]
     Route: 058

REACTIONS (7)
  - BRACHIAL PLEXOPATHY [None]
  - NAUSEA [None]
  - NEUTROPENIA [None]
  - PARALYSIS [None]
  - PYREXIA [None]
  - RASH [None]
  - WEIGHT DECREASED [None]
